FAERS Safety Report 8433409-X (Version None)
Quarter: 2012Q2

REPORT INFORMATION
  Report Type: 
  Country: None (occurrence: None)
  Receive Date: 20120613
  Receipt Date: 20120606
  Transmission Date: 20120825
  Serious: Yes (Disabling)
  Sender: FDA-Public Use
  Company Number: IE-MERCK-1205USA00587

PATIENT
  Age: 25 Year
  Sex: Male
  Weight: 61 kg

DRUGS (12)
  1. AQUADEKS [Concomitant]
     Indication: PANCREATIC INSUFFICIENCY
     Route: 065
  2. VENTOLIN [Concomitant]
     Indication: ASTHMA
     Route: 065
  3. FLONASE [Concomitant]
     Indication: SINUSITIS
     Route: 065
  4. TOBRAMYCIN [Concomitant]
     Route: 065
  5. SINGULAIR [Suspect]
     Indication: ASTHMA
     Route: 048
     Dates: start: 20110101
  6. FLUTICASONE PROPIONATE/SALMETEROL [Concomitant]
     Indication: ASTHMA
     Route: 065
  7. OMEPRAZOLE [Concomitant]
     Indication: REFLUX GASTRITIS
     Route: 048
  8. ZITHROMAX [Concomitant]
     Indication: PROPHYLAXIS
     Route: 048
  9. PULMOZYME [Concomitant]
     Indication: CYSTIC FIBROSIS
     Route: 065
  10. CROLOM [Concomitant]
     Indication: PANCREATIC INSUFFICIENCY
     Dosage: 10,500 MV WITH MEALS
     Route: 065
  11. COLISTIN SULFATE [Concomitant]
     Route: 065
  12. CALCIUM CARBONATE [Concomitant]
     Indication: OSTEOPENIA
     Route: 065

REACTIONS (2)
  - DRUG INTERACTION [None]
  - MIGRAINE [None]
